FAERS Safety Report 6220092-7 (Version None)
Quarter: 2009Q2

REPORT INFORMATION
  Report Type: 
  Country: None (occurrence: None)
  Receive Date: 20090609
  Receipt Date: 20090527
  Transmission Date: 20091009
  Serious: Yes (Other)
  Sender: FDA-Public Use
  Company Number: US-ELI_LILLY_AND_COMPANY-US200905005347

PATIENT
  Sex: Female
  Weight: 133.33 kg

DRUGS (12)
  1. BYETTA [Suspect]
     Indication: TYPE 2 DIABETES MELLITUS
     Dosage: 5 UG, DAILY (1/D)
     Route: 058
     Dates: start: 20080101, end: 20080101
  2. BYETTA [Suspect]
     Dosage: 10 UG, DAILY (1/D)
     Route: 058
     Dates: start: 20080101, end: 20090501
  3. JANUVIA [Concomitant]
     Indication: TYPE 2 DIABETES MELLITUS
     Dosage: UNK, UNKNOWN
  4. DARVOCET                           /00220901/ [Concomitant]
     Indication: PAIN
     Dosage: UNK, UNKNOWN
  5. DIOVAN HCT [Concomitant]
     Indication: HYPERTENSION
     Dosage: 320 MG, UNK
  6. VERELAN [Concomitant]
     Indication: HYPERTENSION
     Dosage: 300 MG, UNKNOWN
  7. NITROLINGUAL [Concomitant]
     Indication: CHEST PAIN
     Dosage: UNK, AS NEEDED
  8. CARVEDILOL [Concomitant]
     Indication: BLOOD PRESSURE
     Dosage: 25 MG, 2/D
  9. LISINOPRIL [Concomitant]
     Indication: BLOOD PRESSURE
     Dosage: 20 MG, UNKNOWN
  10. TORSEMIDE [Concomitant]
     Indication: FLUID IMBALANCE
     Dosage: 20 MG, UNKNOWN
  11. AMARYL [Concomitant]
     Indication: TYPE 2 DIABETES MELLITUS
     Dosage: UNK, AS NEEDED
  12. OXYGEN [Concomitant]
     Indication: SLEEP APNOEA SYNDROME
     Dosage: UNK, UNKNOWN

REACTIONS (6)
  - FALL [None]
  - HYPERTENSION [None]
  - MYALGIA [None]
  - NECK PAIN [None]
  - PAIN [None]
  - ROAD TRAFFIC ACCIDENT [None]
